FAERS Safety Report 8168657-X (Version None)
Quarter: 2012Q1

REPORT INFORMATION
  Report Type: 
  Country: None (occurrence: None)
  Receive Date: 20120227
  Receipt Date: 20120214
  Transmission Date: 20120608
  Serious: Yes (Hospitalization)
  Sender: FDA-Public Use
  Company Number: IL-ELI_LILLY_AND_COMPANY-IL201202006323

PATIENT
  Sex: Female

DRUGS (10)
  1. NORMITEN [Concomitant]
     Indication: HYPERTENSION
  2. CAPOTEN [Concomitant]
     Indication: HYPERTENSION
  3. FORTEO [Suspect]
     Indication: OSTEOPOROSIS
     Dosage: 20 UG, UNK
     Route: 058
     Dates: start: 20101111, end: 20120101
  4. SIMVASTATIN [Concomitant]
     Indication: HYPERLIPIDAEMIA
  5. PRILOSEC [Concomitant]
  6. PROSCAR [Concomitant]
     Indication: HYPERTENSION
     Dosage: UNK
     Dates: end: 20120201
  7. DIGOXIN [Concomitant]
     Indication: HYPERTENSION
     Dosage: UNK
  8. COUMADIN [Concomitant]
     Indication: ANTICOAGULANT THERAPY
  9. MICROPIRIN [Concomitant]
     Indication: ANTICOAGULANT THERAPY
  10. FUROSEMIDE [Concomitant]

REACTIONS (3)
  - BRONCHITIS [None]
  - ASTHMA [None]
  - HOSPITALISATION [None]
